FAERS Safety Report 10783653 (Version 2)
Quarter: 2015Q2

REPORT INFORMATION
  Report Type: Spontaneous
  Country: JP (occurrence: JP)
  Receive Date: 20150210
  Receipt Date: 20150409
  Transmission Date: 20150821
  Serious: Yes (Hospitalization)
  Sender: FDA-Public Use
  Company Number: JP-ELI_LILLY_AND_COMPANY-JP201502003450

PATIENT
  Age: 48 Year
  Sex: Male

DRUGS (2)
  1. HUMALOG [Suspect]
     Active Substance: INSULIN LISPRO
     Indication: PANCREATOGENOUS DIABETES
     Dosage: UNK, THREE TIMES DAILY
     Route: 058
  2. LANTUS [Concomitant]
     Active Substance: INSULIN GLARGINE
     Indication: PANCREATOGENOUS DIABETES
     Dosage: UNK, ONCE DAILY BEFORE BEDTIME
     Route: 058

REACTIONS (1)
  - Hyperglycaemia [Unknown]
